FAERS Safety Report 7948703-6 (Version None)
Quarter: 2011Q4

REPORT INFORMATION
  Report Type: 
  Country: None (occurrence: None)
  Receive Date: 20111130
  Receipt Date: 20111130
  Transmission Date: 20120403
  Serious: Yes (Hospitalization, Disabling)
  Sender: FDA-Public Use
  Company Number: None

PATIENT
  Age: 24 Year
  Sex: Female
  Weight: 39.4 kg

DRUGS (3)
  1. PREDNISONE TAB [Concomitant]
  2. TACROLIMUS [Suspect]
     Indication: TRANSPLANT REJECTION
     Dosage: 5 MG
     Route: 048
     Dates: start: 20111018, end: 20111121
  3. MYFORTIC [Concomitant]
     Route: 048

REACTIONS (4)
  - TRANSPLANT REJECTION [None]
  - DRUG LEVEL DECREASED [None]
  - PRODUCT SUBSTITUTION ISSUE [None]
  - DIARRHOEA [None]
